FAERS Safety Report 6601027-1 (Version None)
Quarter: 2010Q1

REPORT INFORMATION
  Report Type: 
  Country: None (occurrence: None)
  Receive Date: 20100225
  Receipt Date: 20100216
  Transmission Date: 20100710
  Serious: Yes (Hospitalization)
  Sender: FDA-Public Use
  Company Number: JP-JNJFOC-20100209978

PATIENT
  Sex: Male

DRUGS (12)
  1. CRAVIT [Suspect]
     Indication: PYREXIA
     Route: 048
  2. CRAVIT [Suspect]
     Indication: BRONCHITIS
     Route: 048
  3. AMARYL [Suspect]
     Indication: DIABETES MELLITUS
     Route: 048
  4. HYTRACIN [Concomitant]
     Indication: HYPERTENSION
     Route: 048
  5. LASIX [Concomitant]
     Indication: HYPERTENSION
     Route: 048
  6. ASPIRIN [Concomitant]
     Indication: CEREBRAL INFARCTION
     Route: 048
  7. OLMETEC [Concomitant]
     Indication: HYPERTENSION
     Route: 048
  8. MAGNESIUM OXIDE [Concomitant]
     Indication: CONSTIPATION
     Route: 048
  9. CETILO [Concomitant]
     Indication: CONSTIPATION
     Route: 048
  10. PAXIL [Concomitant]
     Route: 048
  11. SENIRAN [Concomitant]
     Route: 048
  12. FLUMARIN [Concomitant]
     Indication: BRONCHITIS
     Route: 042

REACTIONS (2)
  - BLOOD PRESSURE DIASTOLIC DECREASED [None]
  - HYPOGLYCAEMIA [None]
